FAERS Safety Report 13155916 (Version 1)
Quarter: 2017Q1

REPORT INFORMATION
  Report Type: Spontaneous
  Country: US (occurrence: US)
  Receive Date: 20170126
  Receipt Date: 20170126
  Transmission Date: 20170428
  Serious: No
  Sender: FDA-Public Use
  Company Number: US-ROCHE-GNE309037

PATIENT
  Age: 70 Year
  Sex: Male
  Weight: 90.8 kg

DRUGS (2)
  1. CATHFLO ACTIVASE [Suspect]
     Active Substance: ALTEPLASE
     Indication: COMPLICATION ASSOCIATED WITH DEVICE
     Dosage: 2 MG, X2
     Route: 050
     Dates: start: 20100817
  2. CATHFLO ACTIVASE [Suspect]
     Active Substance: ALTEPLASE
     Indication: COMPLICATION ASSOCIATED WITH DEVICE

REACTIONS (1)
  - Complication associated with device [Recovered/Resolved]

NARRATIVE: CASE EVENT DATE: 20100817
